FAERS Safety Report 6572452-2 (Version None)
Quarter: 2010Q1

REPORT INFORMATION
  Report Type: 
  Country: None (occurrence: None)
  Receive Date: 20100205
  Receipt Date: 20100126
  Transmission Date: 20100710
  Serious: Yes (Hospitalization, Other)
  Sender: FDA-Public Use
  Company Number: US-PFIZER INC-2010012149

PATIENT
  Sex: Female
  Weight: 65 kg

DRUGS (7)
  1. GEODON [Suspect]
     Indication: BIPOLAR DISORDER
     Dosage: 40 MG, UNK
     Dates: start: 20050216, end: 20050824
  2. DILANTIN-125 [Suspect]
     Indication: PETIT MAL EPILEPSY
     Dosage: UNK
     Dates: start: 20050101, end: 20060201
  3. CITALOPRAM [Suspect]
  4. ABILIFY [Suspect]
     Dosage: 15 MG, UNK
     Route: 048
     Dates: start: 20050701
  5. PROPRANOLOL [Suspect]
     Dosage: UNK
     Dates: start: 20050101
  6. WELLBUTRIN [Suspect]
     Dosage: 150 MG, 1X/DAY
     Dates: start: 20051019
  7. DEPAKOTE [Suspect]
     Indication: CONVULSION
     Dosage: 500 MG, 2X/DAY
     Dates: start: 20050201

REACTIONS (23)
  - COGNITIVE DISORDER [None]
  - DELUSION [None]
  - DEPRESSION [None]
  - DIZZINESS [None]
  - DYSARTHRIA [None]
  - HALLUCINATION, AUDITORY [None]
  - HALLUCINATION, VISUAL [None]
  - HYPERSOMNIA [None]
  - HYPOTENSION [None]
  - INSOMNIA [None]
  - LETHARGY [None]
  - MEMORY IMPAIRMENT [None]
  - MENSTRUATION IRREGULAR [None]
  - MIGRAINE [None]
  - OVARIAN CYST [None]
  - PRESYNCOPE [None]
  - PSYCHOMOTOR RETARDATION [None]
  - SALIVARY HYPERSECRETION [None]
  - SUICIDAL IDEATION [None]
  - TENSION HEADACHE [None]
  - THINKING ABNORMAL [None]
  - VISION BLURRED [None]
  - WEIGHT INCREASED [None]
